FAERS Safety Report 20835321 (Version 1)
Quarter: 2022Q2

REPORT INFORMATION
  Report Type: Spontaneous
  Country: CO (occurrence: CO)
  Receive Date: 20220516
  Receipt Date: 20220516
  Transmission Date: 20220721
  Serious: Yes (Other)
  Sender: FDA-Public Use
  Company Number: CO-BAYER-2021A260156

PATIENT
  Sex: Female

DRUGS (1)
  1. LEVONORGESTREL [Suspect]
     Active Substance: LEVONORGESTREL
     Indication: Contraception
     Route: 059
     Dates: start: 2016

REACTIONS (3)
  - Genital haemorrhage [Not Recovered/Not Resolved]
  - Implant site pain [Not Recovered/Not Resolved]
  - Adverse event [Not Recovered/Not Resolved]
